FAERS Safety Report 9331049 (Version 1)
Quarter: 2013Q2

REPORT INFORMATION
  Report Type: Spontaneous
  Country: IT (occurrence: IT)
  Receive Date: 20130605
  Receipt Date: 20130605
  Transmission Date: 20140414
  Serious: Yes (Death)
  Sender: FDA-Public Use
  Company Number: IT-BRISTOL-MYERS SQUIBB COMPANY-18964031

PATIENT
  Age: 77 Year
  Sex: Female

DRUGS (4)
  1. WARFARIN SODIUM [Suspect]
     Dosage: 14-MAY-2013
     Route: 048
     Dates: start: 20130402, end: 20130514
  2. TRACLEER [Suspect]
     Indication: PULMONARY HYPERTENSION
     Dosage: 14MAY2013
     Route: 048
     Dates: start: 20130510, end: 20130514
  3. TADALAFIL [Suspect]
     Dosage: 14-MAY-2013.
     Route: 048
     Dates: start: 20130304, end: 20130514
  4. FUROSEMIDE [Concomitant]
     Dates: start: 20130304, end: 20130514

REACTIONS (3)
  - Cardiac arrest [Fatal]
  - Cardiac failure [Fatal]
  - Pulmonary hypertension [Fatal]
